FAERS Safety Report 5130270-6 (Version None)
Quarter: 2006Q4

REPORT INFORMATION
  Report Type: 
  Country: None (occurrence: None)
  Receive Date: 20061018
  Receipt Date: 20061018
  Transmission Date: 20070319
  Serious: Yes (Life-Threatening, Hospitalization, Disabling, Other)
  Sender: FDA-Public Use
  Company Number: None

PATIENT
  Age: 59 Year
  Sex: Female
  Weight: 90.7194 kg

DRUGS (3)
  1. TRAMADOL HCL [Suspect]
     Indication: ARTHRALGIA
     Dosage: 2 50MG. 3X''S PER DAY
     Dates: start: 20000101, end: 20060101
  2. TRAMADOL HCL [Suspect]
     Indication: BONE PAIN
     Dosage: 2 50MG. 3X''S PER DAY
     Dates: start: 20000101, end: 20060101
  3. TRAMADOL HCL [Suspect]
     Indication: SPINAL FUSION SURGERY
     Dosage: 2 50MG. 3X''S PER DAY
     Dates: start: 20000101, end: 20060101

REACTIONS (4)
  - DYSPNOEA [None]
  - INFLUENZA LIKE ILLNESS [None]
  - PO2 DECREASED [None]
  - RESPIRATION ABNORMAL [None]
